FAERS Safety Report 14352482 (Version 4)
Quarter: 2018Q2

REPORT INFORMATION
  Report Type: Report from Study
  Country: US (occurrence: US)
  Receive Date: 20180104
  Receipt Date: 20180413
  Transmission Date: 20180711
  Serious: Yes (Hospitalization)
  Sender: FDA-Public Use
  Company Number: US-ACTELION-A-NJ2017-156199

PATIENT
  Age: 70 Year
  Sex: Female
  Weight: 55.33 kg

DRUGS (2)
  1. ELIQUIS [Concomitant]
     Active Substance: APIXABAN
  2. OPSUMIT [Suspect]
     Active Substance: MACITENTAN
     Indication: PULMONARY ARTERIAL HYPERTENSION
     Dosage: 10 MG, QD
     Route: 048

REACTIONS (14)
  - Arthralgia [Unknown]
  - Cardiac disorder [Unknown]
  - Influenza [Unknown]
  - Dyspnoea exertional [Not Recovered/Not Resolved]
  - Nasal congestion [Unknown]
  - Pain [Unknown]
  - Decreased activity [Unknown]
  - Joint injury [Unknown]
  - Dyspnoea [Unknown]
  - Pulmonary embolism [Unknown]
  - Respiratory failure [Unknown]
  - Therapy non-responder [Unknown]
  - Fall [Unknown]
  - Palpitations [Unknown]

NARRATIVE: CASE EVENT DATE: 20180121
